FAERS Safety Report 7086975-3 (Version None)
Quarter: 2010Q4

REPORT INFORMATION
  Report Type: 
  Country: None (occurrence: None)
  Receive Date: 20101106
  Receipt Date: 20101021
  Transmission Date: 20110411
  Serious: Yes (Disabling)
  Sender: FDA-Public Use
  Company Number: US-WYE-H17502410

PATIENT
  Sex: Male
  Weight: 86 kg

DRUGS (10)
  1. RAPAMUNE [Suspect]
     Indication: HEART TRANSPLANT
     Route: 048
     Dates: start: 20100427, end: 20100712
  2. RAPAMUNE [Suspect]
     Route: 048
     Dates: start: 20100824, end: 20100915
  3. CELLCEPT [Concomitant]
     Indication: IMMUNOSUPPRESSANT DRUG THERAPY
     Dates: start: 20090914
  4. ACETYLSALICYLIC ACID [Concomitant]
     Indication: PROPHYLAXIS
     Dates: start: 20090914
  5. KEPPRA [Concomitant]
     Dosage: 750, TWICE DAILY
  6. ZOCOR [Concomitant]
     Indication: BLOOD CHOLESTEROL
     Dates: start: 20090914
  7. MAGNESIUM [Concomitant]
     Dosage: 128, TWICE DAILY
  8. OMEPRAZOLE [Concomitant]
     Dosage: 20, TWICE DAILY
  9. PROGRAF [Concomitant]
     Indication: IMMUNOSUPPRESSANT DRUG THERAPY
     Dates: start: 20090914
  10. BACTRIM [Concomitant]
     Indication: INFECTION PROPHYLAXIS
     Dosage: 1 TAB DAILY ON MON, WED AND FRI
     Dates: start: 20090914

REACTIONS (3)
  - MOUTH ULCERATION [None]
  - RASH [None]
  - RENAL IMPAIRMENT [None]
